FAERS Safety Report 9694035 (Version 1)
Quarter: 2013Q4

REPORT INFORMATION
  Report Type: Spontaneous
  Country: BR (occurrence: BR)
  Receive Date: 20131118
  Receipt Date: 20131118
  Transmission Date: 20140711
  Serious: Yes (Hospitalization)
  Sender: FDA-Public Use
  Company Number: BR-SA-2013SA114547

PATIENT
  Age: 0 Day
  Sex: Female
  Weight: 1.13 kg

DRUGS (4)
  1. ENOXAPARIN SODIUM [Suspect]
     Indication: MATERNAL EXPOSURE TIMING UNSPECIFIED
     Dosage: TREATMENT STOPPED DATE:2013.?DOSE: 100MG DAILY (2 SYRINGES OF 40MG AND 1 SYRINGE OF 20MG)
     Route: 064
     Dates: start: 20130404
  2. ENOXAPARIN SODIUM [Suspect]
     Indication: MATERNAL EXPOSURE TIMING UNSPECIFIED
     Dosage: TREATMENT STOP DATE HAS BEEN REPORTED AS AUG-2013.
     Route: 064
     Dates: start: 2013
  3. FOLIC ACID [Concomitant]
     Indication: FOETAL EXPOSURE TIMING UNSPECIFIED
     Route: 064
     Dates: start: 201302
  4. NEUTROFER [Concomitant]
     Indication: FOETAL EXPOSURE TIMING UNSPECIFIED
     Route: 064
     Dates: start: 201212, end: 2013

REACTIONS (2)
  - Weight decreased [Recovered/Resolved]
  - Foetal exposure during pregnancy [Unknown]
